FAERS Safety Report 25595007 (Version 1)
Quarter: 2025Q3

REPORT INFORMATION
  Report Type: Report from Study
  Country: CA (occurrence: CA)
  Receive Date: 20250723
  Receipt Date: 20250723
  Transmission Date: 20251020
  Serious: Yes (Other)
  Sender: TAKEDA
  Company Number: CA-TAKEDA-2025TUS065070

PATIENT
  Sex: Female

DRUGS (4)
  1. VEDOLIZUMAB [Suspect]
     Active Substance: VEDOLIZUMAB
     Indication: Colitis ulcerative
  2. PANTOPRAZOLE SODIUM [Suspect]
     Active Substance: PANTOPRAZOLE SODIUM
     Indication: Product used for unknown indication
     Dosage: 40 MILLIGRAM, BID
  3. IMURAN [Concomitant]
     Active Substance: AZATHIOPRINE
  4. Salofalk [Concomitant]

REACTIONS (1)
  - Intestinal haemorrhage [Recovered/Resolved]
